FAERS Safety Report 7712645-1 (Version None)
Quarter: 2011Q3

REPORT INFORMATION
  Report Type: 
  Country: None (occurrence: None)
  Receive Date: 20110826
  Receipt Date: 20110822
  Transmission Date: 20111222
  Serious: Yes (Other)
  Sender: FDA-Public Use
  Company Number: JP-EISAI INC-E2020-09590-SPO-JP

PATIENT
  Age: 74 Year
  Sex: Male

DRUGS (4)
  1. URITOS [Concomitant]
     Dosage: UNKNOWN
     Dates: end: 20110801
  2. URITOS [Concomitant]
     Dosage: ^REDUCED IN HALF^
     Dates: start: 20110801
  3. MUCODYNE [Concomitant]
  4. ARICEPT [Suspect]
     Route: 048
     Dates: start: 20110719, end: 20110801

REACTIONS (1)
  - DEPRESSED LEVEL OF CONSCIOUSNESS [None]
